FAERS Safety Report 12721020 (Version 3)
Quarter: 2016Q4

REPORT INFORMATION
  Report Type: Spontaneous
  Country: US (occurrence: US)
  Receive Date: 20160907
  Receipt Date: 20161209
  Transmission Date: 20170207
  Serious: Yes (Other)
  Sender: FDA-Public Use
  Company Number: US-TEVA-690307USA

PATIENT
  Age: 65 Year
  Sex: Female

DRUGS (19)
  1. CLONAZEPAM. [Concomitant]
     Active Substance: CLONAZEPAM
  2. IBUPROFEN. [Concomitant]
     Active Substance: IBUPROFEN
  3. TOPIRAMATE. [Concomitant]
     Active Substance: TOPIRAMATE
  4. ALEVE [Concomitant]
     Active Substance: NAPROXEN SODIUM
  5. METAXALONE. [Concomitant]
     Active Substance: METAXALONE
  6. OMEPRAZOLE. [Concomitant]
     Active Substance: OMEPRAZOLE
  7. MIRAPEX [Concomitant]
     Active Substance: PRAMIPEXOLE DIHYDROCHLORIDE
  8. RANITIDINE. [Concomitant]
     Active Substance: RANITIDINE
  9. COPAXONE [Suspect]
     Active Substance: GLATIRAMER ACETATE
     Indication: MULTIPLE SCLEROSIS
     Route: 058
  10. ESCITALOPRAM [Concomitant]
     Active Substance: ESCITALOPRAM OXALATE
  11. ISOMATH/APAP [Concomitant]
  12. WELLBUTRIN [Concomitant]
     Active Substance: BUPROPION HYDROCHLORIDE
  13. ZYRTEC [Concomitant]
     Active Substance: CETIRIZINE HYDROCHLORIDE
  14. VITAMIN B12 [Concomitant]
     Active Substance: CYANOCOBALAMIN
  15. VITAMIN D [Concomitant]
     Active Substance: CHOLECALCIFEROL
  16. FLONASE SPRAY [Concomitant]
  17. SYNTHROID [Concomitant]
     Active Substance: LEVOTHYROXINE SODIUM
  18. HCTZ [Concomitant]
     Active Substance: HYDROCHLOROTHIAZIDE
  19. TRAMADOL. [Concomitant]
     Active Substance: TRAMADOL

REACTIONS (6)
  - Pain [Unknown]
  - Product use issue [Unknown]
  - Wrong technique in product usage process [Unknown]
  - Multiple sclerosis relapse [Unknown]
  - Stress [Unknown]
  - Injection site erythema [Not Recovered/Not Resolved]

NARRATIVE: CASE EVENT DATE: 201608
